FAERS Safety Report 24723259 (Version 1)
Quarter: 2024Q4

REPORT INFORMATION
  Report Type: Spontaneous
  Country: CA (occurrence: CA)
  Receive Date: 20241211
  Receipt Date: 20241211
  Transmission Date: 20250115
  Serious: Yes (Other)
  Sender: PFIZER
  Company Number: CA-PFIZER INC-202400319010

PATIENT
  Sex: Female

DRUGS (18)
  1. TRANEXAMIC ACID [Suspect]
     Active Substance: TRANEXAMIC ACID
     Dosage: UNK
  2. CARBETOCIN [Suspect]
     Active Substance: CARBETOCIN
     Dosage: UNK
  3. DEXAMETHASONE [Suspect]
     Active Substance: DEXAMETHASONE
     Dosage: UNK
     Route: 065
  4. KETAMINE [Suspect]
     Active Substance: KETAMINE
     Dosage: UNK
  5. ONDANSETRON [Suspect]
     Active Substance: ONDANSETRON
     Dosage: UNK
  6. ANCEF [CEFTRIAXONE SODIUM] [Concomitant]
     Dosage: UNK
  7. BENZOCAINE [Concomitant]
     Active Substance: BENZOCAINE
     Dosage: UNK
  8. CLONIDINE [Concomitant]
     Active Substance: CLONIDINE
     Dosage: UNK
  9. COCAINE [Concomitant]
     Active Substance: COCAINE
     Dosage: UNK
  10. DEXMEDETOMIDINE [Concomitant]
     Active Substance: DEXMEDETOMIDINE
     Dosage: UNK
  11. FENTANYL CITRATE [Concomitant]
     Active Substance: FENTANYL CITRATE
     Dosage: UNK
  12. LORAZEPAM [Concomitant]
     Active Substance: LORAZEPAM
     Dosage: UNK
  13. METHAMPHETAMINE [Concomitant]
     Active Substance: METHAMPHETAMINE
     Dosage: UNK
  14. MORPHINE EPIDURAL [Concomitant]
     Dosage: UNK
  15. METHADONE [Concomitant]
     Active Substance: METHADONE HYDROCHLORIDE
     Dosage: UNK
  16. NICOTINE [Concomitant]
     Active Substance: NICOTINE
     Dosage: UNK
  17. NITROGLYCERIN [Concomitant]
     Active Substance: NITROGLYCERIN
     Dosage: UNK
  18. PROPOFOL [Concomitant]
     Active Substance: PROPOFOL
     Dosage: UNK

REACTIONS (11)
  - Agitation [Unknown]
  - Amnesia [Unknown]
  - Caesarean section [Unknown]
  - Disinhibition [Unknown]
  - Electrocardiogram PR shortened [Unknown]
  - Electrocardiogram QRS complex prolonged [Unknown]
  - Electrocardiogram ST segment depression [Unknown]
  - Myoclonus [Unknown]
  - Nausea [Unknown]
  - Paradoxical drug reaction [Unknown]
  - Tachycardia [Unknown]
